FAERS Safety Report 6505803-5 (Version None)
Quarter: 2009Q4

REPORT INFORMATION
  Report Type: 
  Country: None (occurrence: None)
  Receive Date: 20091217
  Receipt Date: 20091217
  Transmission Date: 20100525
  Serious: Yes (Life-Threatening, Other)
  Sender: FDA-Public Use
  Company Number: None

PATIENT
  Age: 64 Year
  Sex: Male
  Weight: 131.5431 kg

DRUGS (1)
  1. LIPITOR [Suspect]

REACTIONS (3)
  - FATIGUE [None]
  - MUSCLE SPASMS [None]
  - MYALGIA [None]
